FAERS Safety Report 16997289 (Version 1)
Quarter: 2019Q4

REPORT INFORMATION
  Report Type: Report from Study
  Country: CA (occurrence: CA)
  Receive Date: 20191106
  Receipt Date: 20191106
  Transmission Date: 20200122
  Serious: Yes (Other)
  Sender: FDA-Public Use
  Company Number: CA-ORION CORPORATION ORION PHARMA-TREX2019-5146

PATIENT
  Sex: Female

DRUGS (14)
  1. DICLOFENAC [Suspect]
     Active Substance: DICLOFENAC
     Route: 048
  2. COSENTYX [Suspect]
     Active Substance: SECUKINUMAB
     Indication: ANKYLOSING SPONDYLITIS
     Route: 058
  3. ARTHROTEC [Concomitant]
     Active Substance: DICLOFENAC SODIUM\MISOPROSTOL
     Route: 065
  4. IBUPROFEN. [Concomitant]
     Active Substance: IBUPROFEN
     Route: 065
  5. ENBREL [Concomitant]
     Active Substance: ETANERCEPT
     Route: 065
  6. MELOXICAM. [Concomitant]
     Active Substance: MELOXICAM
     Route: 065
  7. INDOMETHACIN. [Suspect]
     Active Substance: INDOMETHACIN
     Indication: PRODUCT USED FOR UNKNOWN INDICATION
     Route: 065
  8. COSENTYX [Suspect]
     Active Substance: SECUKINUMAB
     Route: 058
  9. PLAQUENIL S [Concomitant]
     Active Substance: HYDROXYCHLOROQUINE SULFATE
     Route: 065
  10. DICLOFENAC [Suspect]
     Active Substance: DICLOFENAC
     Indication: PRODUCT USED FOR UNKNOWN INDICATION
     Route: 048
  11. HUMIRA [Concomitant]
     Active Substance: ADALIMUMAB
     Route: 065
  12. NAPROXEN. [Concomitant]
     Active Substance: NAPROXEN
     Route: 065
  13. KETOPROFEN. [Concomitant]
     Active Substance: KETOPROFEN
     Route: 065
  14. METHOTREXATE (TRADE NAME UNKNOWN) [Suspect]
     Active Substance: METHOTREXATE
     Indication: PRODUCT USED FOR UNKNOWN INDICATION
     Route: 065

REACTIONS (7)
  - Nerve compression [Unknown]
  - Arthropathy [Unknown]
  - Pain in extremity [Unknown]
  - Hypersensitivity [Unknown]
  - Drug ineffective [Unknown]
  - Eye pain [Unknown]
  - Fibromatosis [Unknown]
